FAERS Safety Report 7210935-2 (Version None)
Quarter: 2011Q1

REPORT INFORMATION
  Report Type: 
  Country: None (occurrence: None)
  Receive Date: 20110105
  Receipt Date: 20101216
  Transmission Date: 20110831
  Serious: Yes (Congenital Anomaly)
  Sender: FDA-Public Use
  Company Number: A0685042A

PATIENT
  Sex: Male
  Weight: 1.9 kg

DRUGS (3)
  1. PAXIL CR [Suspect]
     Indication: DISABILITY
     Dosage: 25MG PER DAY
     Dates: start: 20060110, end: 20060217
  2. ZOLOFT [Concomitant]
  3. ANTI-PSYCHOTIC MEDICATION [Concomitant]
     Dates: end: 20051221

REACTIONS (5)
  - CARDIAC MURMUR [None]
  - ATRIAL SEPTAL DEFECT [None]
  - AORTIC STENOSIS [None]
  - PULMONARY VALVE STENOSIS [None]
  - DRUG EXPOSURE DURING PREGNANCY [None]
